FAERS Safety Report 7295853-6 (Version None)
Quarter: 2011Q1

REPORT INFORMATION
  Report Type: 
  Country: None (occurrence: None)
  Receive Date: 20110216
  Receipt Date: 20110127
  Transmission Date: 20110831
  Serious: No
  Sender: FDA-Public Use
  Company Number: US-ABBOTT-11P-163-0700983-00

PATIENT
  Sex: Male
  Weight: 76.272 kg

DRUGS (5)
  1. ASPIRIN [Concomitant]
     Indication: PRODUCT USED FOR UNKNOWN INDICATION
  2. STOMACH MEDICATION [Concomitant]
     Indication: PRODUCT USED FOR UNKNOWN INDICATION
  3. SIMCOR [Suspect]
     Dosage: ONLY TOOK TWO DOSES
     Dates: start: 20110127
  4. UNKNOWN MEDICATION [Concomitant]
     Indication: CARDIAC DISORDER
  5. SIMCOR [Suspect]
     Indication: PRODUCT USED FOR UNKNOWN INDICATION
     Dosage: 500/20MG

REACTIONS (3)
  - FLUSHING [None]
  - FEELING HOT [None]
  - ERYTHEMA [None]
